FAERS Safety Report 8113557-4 (Version None)
Quarter: 2012Q1

REPORT INFORMATION
  Report Type: 
  Country: None (occurrence: None)
  Receive Date: 20120203
  Receipt Date: 20120202
  Transmission Date: 20120608
  Serious: Yes (Other)
  Sender: FDA-Public Use
  Company Number: US-PFIZER INC-2012029495

PATIENT
  Sex: Female
  Weight: 82.54 kg

DRUGS (4)
  1. BACLOFEN [Concomitant]
     Dosage: UNK
  2. CELEBREX [Suspect]
     Indication: INFLAMMATION
     Dosage: 200 MG, UNK
     Route: 048
  3. CELEBREX [Suspect]
     Indication: ARTHRITIS
  4. LYRICA [Concomitant]
     Dosage: UNK

REACTIONS (3)
  - NERVE INJURY [None]
  - ABASIA [None]
  - INTERVERTEBRAL DISC PROTRUSION [None]
